FAERS Safety Report 13167731 (Version 2)
Quarter: 2017Q1

REPORT INFORMATION
  Report Type: Report from Study
  Country: FR (occurrence: FR)
  Receive Date: 20170131
  Receipt Date: 20170201
  Transmission Date: 20170428
  Serious: Yes (Hospitalization)
  Sender: FDA-Public Use
  Company Number: FR-JNJFOC-20170126183

PATIENT
  Age: 11 Year
  Sex: Female
  Weight: 33.8 kg

DRUGS (1)
  1. REMICADE [Suspect]
     Active Substance: INFLIXIMAB
     Indication: CROHN^S DISEASE
     Route: 042
     Dates: start: 20110317

REACTIONS (1)
  - Arthritis enteropathic [Recovered/Resolved]

NARRATIVE: CASE EVENT DATE: 20130116
